FAERS Safety Report 12939041 (Version 1)
Quarter: 2016Q4

REPORT INFORMATION
  Report Type: Report from Study
  Country: NL (occurrence: NL)
  Receive Date: 20161115
  Receipt Date: 20161115
  Transmission Date: 20170207
  Serious: Yes (Other)
  Sender: FDA-Public Use
  Company Number: NL-ASTELLAS-2016US044982

PATIENT
  Age: 51 Year
  Sex: Male

DRUGS (2)
  1. ERLOTINIB [Suspect]
     Active Substance: ERLOTINIB
     Indication: BRONCHIOLOALVEOLAR CARCINOMA
     Dosage: UNK UNK, UNKNOWN FREQ.
     Route: 065
  2. GEFITINIB [Concomitant]
     Active Substance: GEFITINIB
     Indication: BRONCHIOLOALVEOLAR CARCINOMA
     Dosage: UNK UNK, UNKNOWN FREQ.
     Route: 065

REACTIONS (1)
  - Pleural disorder [Unknown]
